FAERS Safety Report 22072966 (Version 1)
Quarter: 2023Q1

REPORT INFORMATION
  Report Type: Spontaneous
  Country: IL (occurrence: IL)
  Receive Date: 20230308
  Receipt Date: 20230308
  Transmission Date: 20230417
  Serious: Yes (Death)
  Sender: FDA-Public Use
  Company Number: IL-KOREA IPSEN Pharma-2023-00213

PATIENT
  Sex: Female

DRUGS (1)
  1. DYSPORT [Suspect]
     Active Substance: ABOBOTULINUMTOXINA
     Indication: Skin wrinkling
     Dosage: NOT REPORTED
     Route: 065

REACTIONS (2)
  - Hepatic cancer [Fatal]
  - Eyelid ptosis [Unknown]
